FAERS Safety Report 21132836 (Version 1)
Quarter: 2022Q3

REPORT INFORMATION
  Report Type: Spontaneous
  Country: US (occurrence: None)
  Receive Date: 20220726
  Receipt Date: 20220726
  Transmission Date: 20221027
  Serious: Yes (Hospitalization)
  Sender: FDA-Public Use
  Company Number: None

PATIENT
  Sex: Female

DRUGS (1)
  1. CIMZIA [Suspect]
     Active Substance: CERTOLIZUMAB PEGOL
     Dosage: OTHER QUANTITY : 2X200 MG/ML;?FREQUENCY : EVERY OTHER WEEK;?
     Route: 058

REACTIONS (2)
  - Hospitalisation [None]
  - Therapy interrupted [None]
